FAERS Safety Report 7056207-0 (Version None)
Quarter: 2010Q4

REPORT INFORMATION
  Report Type: 
  Country: None (occurrence: None)
  Receive Date: 20101018
  Receipt Date: 20100924
  Transmission Date: 20110411
  Serious: No
  Sender: FDA-Public Use
  Company Number: 2010-00851

PATIENT
  Sex: Female

DRUGS (1)
  1. ZICAM COLD REMEDY NASAL GEL [Suspect]
     Dosage: AS DIRECTED, AFTER USE SPRING 2007

REACTIONS (2)
  - AGEUSIA [None]
  - ANOSMIA [None]
